FAERS Safety Report 6081527-6 (Version None)
Quarter: 2009Q1

REPORT INFORMATION
  Report Type: 
  Country: None (occurrence: None)
  Receive Date: 20090218
  Receipt Date: 20090203
  Transmission Date: 20090719
  Serious: Yes (Other)
  Sender: FDA-Public Use
  Company Number: CN-PFIZER INC-2009165730

PATIENT

DRUGS (2)
  1. VFEND [Suspect]
     Indication: PULMONARY MYCOSIS
     Dosage: UNK
     Route: 048
     Dates: start: 20090127
  2. VFEND [Suspect]
     Dosage: UNK
     Route: 042
     Dates: start: 20090128

REACTIONS (3)
  - MYDRIASIS [None]
  - PUPILLARY LIGHT REFLEX TESTS ABNORMAL [None]
  - VISION BLURRED [None]
